FAERS Safety Report 8056737-9 (Version None)
Quarter: 2012Q1

REPORT INFORMATION
  Report Type: 
  Country: None (occurrence: None)
  Receive Date: 20120119
  Receipt Date: 20120111
  Transmission Date: 20120608
  Serious: Yes (Hospitalization)
  Sender: FDA-Public Use
  Company Number: JP-JNJFOC-20111200273

PATIENT
  Age: 51 Year
  Sex: Female
  Weight: 52 kg

DRUGS (16)
  1. PREDNISOLONE [Concomitant]
     Indication: COLITIS ULCERATIVE
     Dates: start: 20110112
  2. REMICADE [Suspect]
     Route: 042
     Dates: start: 20110706
  3. IMURAN [Suspect]
     Indication: COLITIS ULCERATIVE
     Dates: start: 20101117, end: 20110331
  4. ASACOL [Concomitant]
     Indication: COLITIS ULCERATIVE
     Dates: start: 20100901
  5. REMICADE [Suspect]
     Indication: COLITIS ULCERATIVE
     Route: 042
     Dates: start: 20110519
  6. TACROLIMUS [Suspect]
     Indication: COLITIS ULCERATIVE
     Dates: start: 20101010
  7. CYCLOSPORINE [Suspect]
     Indication: PRODUCT USED FOR UNKNOWN INDICATION
     Dates: start: 20091005, end: 20091018
  8. ACTONEL [Concomitant]
  9. REMICADE [Suspect]
     Route: 042
     Dates: start: 20110209
  10. REMICADE [Suspect]
     Route: 042
     Dates: start: 20101208
  11. PREDNISOLONE [Concomitant]
     Dates: start: 20101208, end: 20110111
  12. REMICADE [Suspect]
     Route: 042
     Dates: start: 20101027
  13. REMICADE [Suspect]
     Route: 042
     Dates: start: 20101110
  14. TACROLIMUS [Suspect]
     Dates: start: 20091010, end: 20101019
  15. ADALIMUMAB [Suspect]
     Indication: PRODUCT USED FOR UNKNOWN INDICATION
     Dates: start: 20090427, end: 20090911
  16. PREDNISOLONE [Concomitant]
     Dates: start: 20100930, end: 20101207

REACTIONS (2)
  - ENDOMETRIAL CANCER [None]
  - HERPES ZOSTER [None]
